FAERS Safety Report 16660049 (Version 1)
Quarter: 2019Q3

REPORT INFORMATION
  Report Type: Spontaneous
  Country: US (occurrence: US)
  Receive Date: 20190802
  Receipt Date: 20190802
  Transmission Date: 20191004
  Serious: No
  Sender: FDA-Public Use
  Company Number: US-AMGEN-USASP2019120478

PATIENT
  Age: 50 Year
  Sex: Female

DRUGS (2)
  1. ARANESP [Suspect]
     Active Substance: DARBEPOETIN ALFA
     Dosage: 100 MICROGRAM, AS NECESSARY
     Route: 065
     Dates: start: 2017
  2. ARANESP [Suspect]
     Active Substance: DARBEPOETIN ALFA
     Indication: FULL BLOOD COUNT DECREASED
     Dosage: 100 MILLIGRAM
     Route: 065

REACTIONS (2)
  - Off label use [Unknown]
  - Full blood count decreased [Unknown]
